FAERS Safety Report 10489263 (Version 1)
Quarter: 2014Q4

REPORT INFORMATION
  Report Type: Spontaneous
  Country: US (occurrence: None)
  Receive Date: 20141001
  Receipt Date: 20141001
  Transmission Date: 20150528
  Serious: No
  Sender: FDA-Public Use
  Company Number: None

PATIENT
  Age: 79 Year
  Sex: Female

DRUGS (1)
  1. FORTEO [Suspect]
     Active Substance: TERIPARATIDE
     Indication: OSTEOPOROSIS
     Dosage: 20 MCG DAILY SUBQ
     Route: 058
     Dates: start: 20140903, end: 20140929

REACTIONS (5)
  - Oral discomfort [None]
  - Glossodynia [None]
  - Dry mouth [None]
  - Chest pain [None]
  - Speech disorder [None]
